FAERS Safety Report 10226422 (Version 1)
Quarter: 2014Q2

REPORT INFORMATION
  Report Type: Spontaneous
  Country: US (occurrence: US)
  Receive Date: 20140609
  Receipt Date: 20140609
  Transmission Date: 20141212
  Serious: No
  Sender: FDA-Public Use
  Company Number: US-AMGEN INC.-USASP2013056978

PATIENT
  Age: 80 Year
  Sex: Male
  Weight: 68.03 kg

DRUGS (4)
  1. PROCRIT [Suspect]
     Indication: RENAL FAILURE CHRONIC
     Dosage: 10000 UNIT, Q3WK
     Route: 065
     Dates: start: 201106
  2. PROCRIT [Suspect]
     Indication: ANAEMIA
     Dosage: 10000 UNIT, Q3WK
     Route: 065
     Dates: start: 2011
  3. GLUCOSAMINE CHONDROITIN            /01430901/ [Concomitant]
     Dosage: UNK
     Dates: start: 2013
  4. ALLOPURINOL [Concomitant]
     Indication: GOUT
     Dosage: UNK

REACTIONS (5)
  - Tooth disorder [Unknown]
  - Eating disorder [Recovered/Resolved]
  - Blood iron decreased [Not Recovered/Not Resolved]
  - Haemoglobin abnormal [Not Recovered/Not Resolved]
  - Weight decreased [Not Recovered/Not Resolved]
